FAERS Safety Report 20013580 (Version 1)
Quarter: 2021Q4

REPORT INFORMATION
  Report Type: Spontaneous
  Country: DE (occurrence: DE)
  Receive Date: 20211029
  Receipt Date: 20211029
  Transmission Date: 20220303
  Serious: Yes (Other)
  Sender: FDA-Public Use
  Company Number: DE-TEVA-2021-DE-1934058

PATIENT
  Age: 68 Year
  Sex: Male

DRUGS (1)
  1. ZOLPIDEM [Suspect]
     Active Substance: ZOLPIDEM TARTRATE
     Indication: Tinnitus
     Dosage: 10 MILLIGRAM, QD (ONE TABLET IN THE EVENING FOR 4 YEARS)
     Route: 048
     Dates: start: 2017

REACTIONS (2)
  - Drug dependence [Not Recovered/Not Resolved]
  - Off label use [Unknown]
